FAERS Safety Report 9744849 (Version 4)
Quarter: 2018Q2

REPORT INFORMATION
  Report Type: Spontaneous
  Country: US (occurrence: US)
  Receive Date: 20131211
  Receipt Date: 20180411
  Transmission Date: 20180711
  Serious: Yes (Hospitalization, Other)
  Sender: FDA-Public Use
  Company Number: US-AMGEN-USASP2013086677

PATIENT
  Age: 69 Year
  Sex: Female
  Weight: 100.6 kg

DRUGS (10)
  1. ENBREL [Suspect]
     Active Substance: ETANERCEPT
     Dosage: 50 MG, QWK
     Route: 065
  2. PRILOSEC [Concomitant]
     Active Substance: OMEPRAZOLE MAGNESIUM
     Dosage: 20 MG, QD AS NEEDED
  3. METHOTREXATE. [Concomitant]
     Active Substance: METHOTREXATE
     Dosage: UNK
  4. ENBREL [Suspect]
     Active Substance: ETANERCEPT
     Indication: PSORIATIC ARTHROPATHY
     Dosage: 50 MG, QWK
     Route: 065
     Dates: start: 20050701, end: 20131030
  5. ARMOUR THYROID [Concomitant]
     Active Substance: THYROID, PORCINE
     Dosage: 90 MG, QD
  6. LIDODERM [Concomitant]
     Active Substance: LIDOCAINE
     Dosage: 5%(FILM)SIG-I PATCH REPLACE EVERY 24 HOURS. ON FOR 12 HOURS, OFF FOR 12
  7. SKELAXIN [Concomitant]
     Active Substance: METAXALONE
     Dosage: 800 MG, THREE TIMES DAILY AS NEEDED
  8. RELAFEN [Concomitant]
     Active Substance: NABUMETONE
     Dosage: 500 MG, 2 TABS ONCE A DAY AS NEEDED
  9. MEDROL [Concomitant]
     Active Substance: METHYLPREDNISOLONE
     Dosage: 4 MG, UNK (1 AS DIRECTED)
  10. FLEXERIL [Concomitant]
     Active Substance: CYCLOBENZAPRINE HYDROCHLORIDE
     Indication: MUSCLE SPASMS
     Dosage: 10 MG, 3 TIMES A DAY AS NEEDED FOR SPASMS

REACTIONS (23)
  - Monoplegia [Not Recovered/Not Resolved]
  - Tenosynovitis [Unknown]
  - Arthropathy [Not Recovered/Not Resolved]
  - Rheumatoid factor positive [Unknown]
  - Paralysis [Not Recovered/Not Resolved]
  - Post procedural hypothyroidism [Unknown]
  - Swelling [Recovering/Resolving]
  - Walking aid user [Unknown]
  - Muscle disorder [Not Recovered/Not Resolved]
  - Arthralgia [Unknown]
  - Psoriasis [Recovering/Resolving]
  - Arthritis [Recovered/Resolved]
  - Nerve injury [Not Recovered/Not Resolved]
  - Pain in extremity [Recovering/Resolving]
  - Joint range of motion decreased [Unknown]
  - Osteoarthritis [Not Recovered/Not Resolved]
  - Thyroid cancer [Unknown]
  - Ovarian failure [Unknown]
  - Sensory loss [Not Recovered/Not Resolved]
  - Gait disturbance [Recovered/Resolved]
  - Osteopenia [Unknown]
  - Stress [Not Recovered/Not Resolved]
  - Loss of personal independence in daily activities [Not Recovered/Not Resolved]

NARRATIVE: CASE EVENT DATE: 20131112
